FAERS Safety Report 15378336 (Version 6)
Quarter: 2021Q4

REPORT INFORMATION
  Report Type: Report from Study
  Country: GB (occurrence: GB)
  Receive Date: 20180913
  Receipt Date: 20211206
  Transmission Date: 20220303
  Serious: Yes (Other)
  Sender: FDA-Public Use
  Company Number: GB-CELGENE-GBR-20180903061

PATIENT
  Age: 74 Year
  Sex: Female

DRUGS (3)
  1. REVLIMID [Suspect]
     Active Substance: LENALIDOMIDE
     Indication: Plasma cell myeloma
     Route: 048
     Dates: start: 20130822, end: 20180814
  2. VORINOSTAT [Suspect]
     Active Substance: VORINOSTAT
     Indication: Plasma cell myeloma
     Route: 048
     Dates: start: 20130822, end: 20140101
  3. CYCLOPHOSPHAMIDE [Suspect]
     Active Substance: CYCLOPHOSPHAMIDE
     Indication: Plasma cell myeloma
     Route: 048
     Dates: start: 20121018, end: 20130328

REACTIONS (1)
  - Gingival cancer [Recovered/Resolved]

NARRATIVE: CASE EVENT DATE: 20180626
